FAERS Safety Report 19943565 (Version 1)
Quarter: 2021Q4

REPORT INFORMATION
  Report Type: Spontaneous
  Country: DE (occurrence: DE)
  Receive Date: 20211012
  Receipt Date: 20211012
  Transmission Date: 20220303
  Serious: Yes (Hospitalization)
  Sender: FDA-Public Use
  Company Number: DE-ADRED-06497-01

PATIENT
  Age: 87 Year
  Sex: Female

DRUGS (13)
  1. PREDNISOLONE [Suspect]
     Active Substance: PREDNISOLONE
     Indication: Product used for unknown indication
     Dosage: 10 MILLIGRAM, QD (10 MG, 1-0-0-0, TABLETTEN)
     Route: 048
  2. APIXABAN [Suspect]
     Active Substance: APIXABAN
     Indication: Product used for unknown indication
     Dosage: 2.5 MILLIGRAM, BID (2.5 MG, 1-0-1-0, TABLETTEN)
     Route: 048
  3. OPIUM TINCTURE [Concomitant]
     Active Substance: MORPHINE
     Dosage: UNK (10 MG, 4 BIS 6 TROPFEN 3 MAL T?GLICH, TROPFEN)
     Route: 048
  4. NITRANGIN [Concomitant]
     Dosage: UNK (BEI BEDARF, SPRAY)
     Route: 048
  5. CALCIUM CARBONATE\CHOLECALCIFEROL [Concomitant]
     Active Substance: CALCIUM CARBONATE\CHOLECALCIFEROL
     Dosage: UNK UNK, QD (1-0-0-0, BRAUSETABLETTEN)
     Route: 048
  6. MAGNESIUM ASPARTATE ANHYDROUS [Concomitant]
     Active Substance: MAGNESIUM ASPARTATE ANHYDROUS
     Dosage: UNK (BEI BEDARF, RETARD-TABLETTEN)
     Route: 048
  7. PREGABALIN [Concomitant]
     Active Substance: PREGABALIN
     Dosage: 25 MILLIGRAM, QD (EFFERVESCENT TABLET)
     Route: 048
  8. ALLOPURINOL [Concomitant]
     Active Substance: ALLOPURINOL
     Dosage: 300 MILLIGRAM, QD (300 MG, 0-1-0-0, TABLETTEN)
     Route: 048
  9. TORSEMIDE [Concomitant]
     Active Substance: TORSEMIDE
     Dosage: 10 MILLIGRAM, QD (10 MG, 1-0-0-0, TABLETTEN)
     Route: 048
  10. PANTOPRAZOLE [Concomitant]
     Active Substance: PANTOPRAZOLE
     Dosage: 40 MILLIGRAM, BID (40 MG, 1-0-1-0, TABLETTEN)
     Route: 048
  11. ERGOCALCIFEROL [Concomitant]
     Active Substance: ERGOCALCIFEROL
     Dosage: UNK, QD (2000 IE, 1-0-0-0, TABLETTEN)
     Route: 048
  12. EZETIMIBA + SINVASTATINA [Concomitant]
     Dosage: UNK, QD (10|20 MG, 0-0-1-0, TABLETTEN )
     Route: 048
  13. CANDESARTAN [Concomitant]
     Active Substance: CANDESARTAN
     Dosage: 16 MILLIGRAM, QD (16 MG, 1-0-0-0, TABLETTEN)
     Route: 048

REACTIONS (6)
  - General physical health deterioration [Unknown]
  - Dyspepsia [Unknown]
  - Dyspnoea [Unknown]
  - Weight bearing difficulty [Unknown]
  - Decreased appetite [Unknown]
  - Weight decreased [Unknown]
